FAERS Safety Report 5138674-2 (Version None)
Quarter: 2006Q4

REPORT INFORMATION
  Report Type: 
  Country: None (occurrence: None)
  Receive Date: 20061026
  Receipt Date: 20061026
  Transmission Date: 20070319
  Serious: Yes (Life-Threatening, Other)
  Sender: FDA-Public Use
  Company Number: None

PATIENT
  Sex: Male
  Weight: 72.5755 kg

DRUGS (5)
  1. IBUPROFEN [Suspect]
     Indication: INFLAMMATION
     Dosage: 400 MG 2 X DAILY PO
     Route: 048
     Dates: start: 19910401, end: 20060401
  2. IBUPROFEN [Suspect]
     Indication: PAIN
     Dosage: 400 MG 2 X DAILY PO
     Route: 048
     Dates: start: 19910401, end: 20060401
  3. NAPROXEN SODIUM [Suspect]
     Indication: INFLAMMATION
     Dosage: 200 MG 2 X DIAILY PO
     Route: 048
     Dates: start: 20060401, end: 20061012
  4. NAPROXEN SODIUM [Suspect]
     Indication: PAIN
     Dosage: 200 MG 2 X DIAILY PO
     Route: 048
     Dates: start: 20060401, end: 20061012
  5. MENTAL HEALTH THERAPY [Concomitant]

REACTIONS (17)
  - ANGER [None]
  - CARDIAC FLUTTER [None]
  - DECREASED INTEREST [None]
  - DEPRESSION [None]
  - DISTURBANCE IN ATTENTION [None]
  - DYSPNOEA [None]
  - FATIGUE [None]
  - FEAR [None]
  - FEELING ABNORMAL [None]
  - HEART RATE IRREGULAR [None]
  - ILL-DEFINED DISORDER [None]
  - MENTAL DISORDER [None]
  - MUSCLE SPASMS [None]
  - NUCHAL RIGIDITY [None]
  - PARAESTHESIA [None]
  - PARANOIA [None]
  - TINNITUS [None]
